FAERS Safety Report 18492403 (Version 11)
Quarter: 2021Q4

REPORT INFORMATION
  Report Type: Report from Study
  Country: CA (occurrence: CA)
  Receive Date: 20201111
  Receipt Date: 20211222
  Transmission Date: 20220303
  Serious: Yes (Other)
  Sender: FDA-Public Use
  Company Number: CA-TAKEDA-2020TUS046904

PATIENT
  Age: 63 Year
  Sex: Female

DRUGS (14)
  1. VEDOLIZUMAB [Suspect]
     Active Substance: VEDOLIZUMAB
     Indication: Colitis ulcerative
     Dosage: 300 MILLIGRAM
     Route: 042
     Dates: start: 20200722
  2. VEDOLIZUMAB [Suspect]
     Active Substance: VEDOLIZUMAB
     Dosage: 300 MILLIGRAM
     Route: 042
     Dates: start: 20201221
  3. VEDOLIZUMAB [Suspect]
     Active Substance: VEDOLIZUMAB
     Dosage: 300 MILLIGRAM, Q4WEEKS
     Route: 042
     Dates: start: 20210122
  4. VEDOLIZUMAB [Suspect]
     Active Substance: VEDOLIZUMAB
     Dosage: 300 MILLIGRAM, Q4WEEKS
     Route: 042
  5. VEDOLIZUMAB [Suspect]
     Active Substance: VEDOLIZUMAB
     Dosage: 300 MILLIGRAM, Q4WEEKS
     Route: 042
  6. VEDOLIZUMAB [Suspect]
     Active Substance: VEDOLIZUMAB
     Dosage: 300 MILLIGRAM,Q4WEEKS
     Route: 042
  7. VEDOLIZUMAB [Suspect]
     Active Substance: VEDOLIZUMAB
     Dosage: 300 MILLIGRAM,Q4WEEKS
     Route: 042
     Dates: end: 20211203
  8. PERINDOPRIL [Concomitant]
     Active Substance: PERINDOPRIL
     Dosage: 2 MILLIGRAM, QD
     Route: 048
  9. CRESTOR [Concomitant]
     Active Substance: ROSUVASTATIN CALCIUM
     Dosage: 10 MILLIGRAM, QD
     Route: 048
  10. IRON [Concomitant]
     Active Substance: IRON
     Dosage: UNK
  11. CALCIUM [Concomitant]
     Active Substance: CALCIUM
     Dosage: UNK
  12. VITAMIN D NOS [Concomitant]
     Active Substance: VITAMIN D NOS
     Dosage: UNK
  13. Salofalk [Concomitant]
     Dosage: 500 MILLIGRAM, QID
  14. PREDNISONE [Concomitant]
     Active Substance: PREDNISONE
     Dosage: UNK

REACTIONS (3)
  - Colitis ulcerative [Unknown]
  - Clostridium difficile infection [Unknown]
  - Off label use [Unknown]

NARRATIVE: CASE EVENT DATE: 20201221
